FAERS Safety Report 4621329-8 (Version None)
Quarter: 2005Q1

REPORT INFORMATION
  Report Type: 
  Country: None (occurrence: None)
  Receive Date: 20050324
  Receipt Date: 20050324
  Transmission Date: 20050727
  Serious: Yes (Hospitalization)
  Sender: FDA-Public Use
  Company Number: None

PATIENT
  Age: 24 Year
  Sex: Female
  Weight: 94.3482 kg

DRUGS (1)
  1. SEPTRA DS [Suspect]
     Indication: CELLULITIS
     Dosage: 1 TAB BID ORAL
     Route: 048
     Dates: start: 20050321, end: 20050321

REACTIONS (2)
  - ERYTHEMA [None]
  - MENINGITIS ASEPTIC [None]
